FAERS Safety Report 18274071 (Version 4)
Quarter: 2022Q2

REPORT INFORMATION
  Report Type: Report from Study
  Country: CO (occurrence: CO)
  Receive Date: 20200916
  Receipt Date: 20220520
  Transmission Date: 20220721
  Serious: Yes (Life-Threatening)
  Sender: FDA-Public Use
  Company Number: None

PATIENT
  Sex: Female

DRUGS (3)
  1. KISQALI [Suspect]
     Active Substance: RIBOCICLIB
     Indication: Breast cancer metastatic
     Dosage: UNK
     Route: 048
  2. KISQALI [Suspect]
     Active Substance: RIBOCICLIB
     Indication: HER2 negative breast cancer
  3. FEMARA [Suspect]
     Active Substance: LETROZOLE
     Indication: Breast cancer
     Dosage: UNK
     Route: 048

REACTIONS (8)
  - Thrombocytopenia [Unknown]
  - Hypersensitivity [Unknown]
  - Muscle spasms [Unknown]
  - Dysstasia [Unknown]
  - Malaise [Unknown]
  - Vertigo [Unknown]
  - Vomiting [Unknown]
  - Asthenia [Unknown]
